FAERS Safety Report 6184374-X (Version None)
Quarter: 2009Q2

REPORT INFORMATION
  Report Type: 
  Country: None (occurrence: None)
  Receive Date: 20090508
  Receipt Date: 20090501
  Transmission Date: 20091009
  Serious: Yes (Death)
  Sender: FDA-Public Use
  Company Number: A0782839A

PATIENT
  Age: 63 Year
  Sex: Female
  Weight: 104.5 kg

DRUGS (10)
  1. AVANDIA [Suspect]
     Indication: DIABETES MELLITUS
     Dosage: 8MG PER DAY
     Route: 048
     Dates: start: 20020301, end: 20070116
  2. AVANDAMET [Suspect]
     Indication: DIABETES MELLITUS
     Route: 048
     Dates: start: 20021101
  3. METFORMIN HCL [Concomitant]
  4. INSULIN [Concomitant]
  5. AMARYL [Concomitant]
  6. LIPITOR [Concomitant]
  7. TRICOR [Concomitant]
  8. WELCHOL [Concomitant]
  9. NEXIUM [Concomitant]
  10. FOSAMAX [Concomitant]

REACTIONS (3)
  - DEATH [None]
  - HYPERTENSION [None]
  - WEIGHT INCREASED [None]
